FAERS Safety Report 9435167 (Version 1)
Quarter: 2013Q3

REPORT INFORMATION
  Report Type: Spontaneous
  Country: US (occurrence: US)
  Receive Date: 20130801
  Receipt Date: 20130801
  Transmission Date: 20140515
  Serious: No
  Sender: FDA-Public Use
  Company Number: US-US-EMD SERONO, INC.-7042886

PATIENT
  Age: 54 Year
  Sex: Female

DRUGS (1)
  1. REBIF [Suspect]
     Indication: MULTIPLE SCLEROSIS
     Route: 058
     Dates: start: 20050715

REACTIONS (4)
  - Sensory loss [Recovering/Resolving]
  - Neuropathy peripheral [Unknown]
  - Hyperkeratosis [Unknown]
  - Multiple sclerosis relapse [Unknown]
